FAERS Safety Report 5536678-9 (Version None)
Quarter: 2007Q4

REPORT INFORMATION
  Report Type: 
  Country: None (occurrence: None)
  Receive Date: 20071206
  Receipt Date: 20070703
  Transmission Date: 20080405
  Serious: Yes (Other)
  Sender: FDA-Public Use
  Company Number: US-AMGEN-KDL231869

PATIENT
  Sex: Female
  Weight: 89.9 kg

DRUGS (2)
  1. ENBREL [Suspect]
     Indication: PSORIATIC ARTHROPATHY
     Route: 058
     Dates: start: 20070111
  2. SULFASALAZINE [Concomitant]
     Route: 065

REACTIONS (8)
  - FUNGAL INFECTION [None]
  - INFLUENZA LIKE ILLNESS [None]
  - LIVER FUNCTION TEST ABNORMAL [None]
  - LOCALISED INFECTION [None]
  - LUNG INFECTION [None]
  - PNEUMONIA [None]
  - PSORIATIC ARTHROPATHY [None]
  - SEPSIS [None]
